FAERS Safety Report 4723465-4 (Version None)
Quarter: 2005Q3

REPORT INFORMATION
  Report Type: 
  Country: None (occurrence: None)
  Receive Date: 20050725
  Receipt Date: 20050308
  Transmission Date: 20060218
  Serious: Yes (Other)
  Sender: FDA-Public Use
  Company Number: NL-GLAXOSMITHKLINE-B0374833A

PATIENT
  Age: 40 Year
  Sex: Male

DRUGS (4)
  1. LAMIVUDINE [Suspect]
     Indication: HIV INFECTION
     Route: 065
     Dates: start: 20031027, end: 20050126
  2. TENOFOVIR DISOPROXIL FUMARATE [Concomitant]
     Route: 065
     Dates: start: 20031101
  3. EFAVIRENZ [Concomitant]
     Route: 065
     Dates: start: 20031101, end: 20041001
  4. NEVIRAPINE [Concomitant]
     Route: 065
     Dates: start: 20050124

REACTIONS (6)
  - COLOUR BLINDNESS [None]
  - GLAUCOMA [None]
  - HALLUCINATION [None]
  - ILLUSION [None]
  - VISUAL ACUITY REDUCED [None]
  - VISUAL DISTURBANCE [None]
